FAERS Safety Report 13879550 (Version 1)
Quarter: 2017Q3

REPORT INFORMATION
  Report Type: Spontaneous
  Country: US (occurrence: US)
  Receive Date: 20170815
  Receipt Date: 20170815
  Transmission Date: 20171127
  Serious: Yes (Other)
  Sender: FDA-Public Use
  Company Number: None

PATIENT
  Age: 61 Year
  Sex: Female
  Weight: 51.75 kg

DRUGS (5)
  1. LOSARTAN. [Concomitant]
     Active Substance: LOSARTAN
  2. LANTUS [Concomitant]
     Active Substance: INSULIN GLARGINE
  3. NOVOLOG [Concomitant]
     Active Substance: INSULIN ASPART
  4. VITAMIN D [Concomitant]
     Active Substance: CHOLECALCIFEROL
  5. BASAGLAR [Suspect]
     Active Substance: INSULIN GLARGINE
     Indication: TYPE 1 DIABETES MELLITUS
     Dosage: ?          QUANTITY:5 ;?
     Route: 058
     Dates: start: 20170812, end: 20170814

REACTIONS (5)
  - Drug effect incomplete [None]
  - Product substitution issue [None]
  - Blood glucose decreased [None]
  - Blood glucose increased [None]
  - Drug effect variable [None]

NARRATIVE: CASE EVENT DATE: 20170812
